FAERS Safety Report 7790936-6 (Version None)
Quarter: 2011Q3

REPORT INFORMATION
  Report Type: 
  Country: None (occurrence: None)
  Receive Date: 20110930
  Receipt Date: 20110930
  Transmission Date: 20111222
  Serious: Yes (Other)
  Sender: FDA-Public Use
  Company Number: None

PATIENT
  Age: 24 Year
  Sex: Male
  Weight: 144.24 kg

DRUGS (2)
  1. XENAZINE [Suspect]
     Indication: TOURETTE'S DISORDER
     Dosage: 1 TAB QAM + 1/2 TAB QPM
     Route: 048
     Dates: start: 20100801, end: 20110830
  2. XENAZINE [Suspect]
     Indication: TIC
     Dosage: 1 TAB QAM + 1/2 TAB QPM
     Route: 048
     Dates: start: 20100801, end: 20110830

REACTIONS (5)
  - AGITATION [None]
  - DEPRESSION [None]
  - AGITATED DEPRESSION [None]
  - SUICIDAL IDEATION [None]
  - ABNORMAL BEHAVIOUR [None]
